FAERS Safety Report 4314026-X (Version None)
Quarter: 2004Q1

REPORT INFORMATION
  Report Type: 
  Country: None (occurrence: None)
  Receive Date: 20040305
  Receipt Date: 20040303
  Transmission Date: 20041129
  Serious: Yes (Hospitalization)
  Sender: FDA-Public Use
  Company Number: 03-0061

PATIENT
  Age: 35 Year
  Sex: Male

DRUGS (2)
  1. PONSTEL [Suspect]
     Indication: TONSILLITIS
     Dosage: 500MG, DAILY, PO
     Route: 048
     Dates: start: 20030711, end: 20030711
  2. UNSPECIFIED ANTIBIOTICS [Concomitant]

REACTIONS (8)
  - BALANITIS [None]
  - BLISTER [None]
  - CHEST PAIN [None]
  - ERYTHEMA [None]
  - HYPERTHERMIA [None]
  - LIVER FUNCTION TEST ABNORMAL [None]
  - OFF LABEL USE [None]
  - PRURITUS [None]
